FAERS Safety Report 14868923 (Version 1)
Quarter: 2018Q2

REPORT INFORMATION
  Report Type: Spontaneous
  Country: DE (occurrence: DE)
  Receive Date: 20180509
  Receipt Date: 20180509
  Transmission Date: 20180711
  Serious: Yes (Other)
  Sender: FDA-Public Use
  Company Number: DE-MERCK KGAA-2047472

PATIENT
  Age: 56 Year
  Sex: Female

DRUGS (5)
  1. NOVOTHYROX [Suspect]
     Active Substance: LEVOTHYROXINE SODIUM
     Indication: AUTOIMMUNE THYROIDITIS
  2. L-THYROXINE [Suspect]
     Active Substance: LEVOTHYROXINE
  3. L-THYROXINE [Suspect]
     Active Substance: LEVOTHYROXINE
  4. L-THYROXINE [Suspect]
     Active Substance: LEVOTHYROXINE
  5. L-THYROXINE [Suspect]
     Active Substance: LEVOTHYROXINE

REACTIONS (7)
  - Blood pressure increased [None]
  - Tachycardia [None]
  - Thyroid function test abnormal [None]
  - Heart rate decreased [None]
  - Hyperthyroidism [None]
  - Body temperature decreased [None]
  - Pigmentation disorder [None]
